FAERS Safety Report 16238688 (Version 1)
Quarter: 2019Q2

REPORT INFORMATION
  Report Type: Spontaneous
  Country: US (occurrence: US)
  Receive Date: 20190424
  Receipt Date: 20190424
  Transmission Date: 20190711
  Serious: Yes (Other)
  Sender: FDA-Public Use
  Company Number: None

PATIENT
  Age: 78 Year
  Sex: Male
  Weight: 78.3 kg

DRUGS (9)
  1. EQUATE BRAND RANITIDINE [Concomitant]
  2. 81 MG ASPIRIN [Concomitant]
     Active Substance: ASPIRIN
  3. ROSUVASTATIN. [Concomitant]
     Active Substance: ROSUVASTATIN
  4. MULTIVITAMIN SENIOR [Concomitant]
  5. VITAMIN D [Concomitant]
     Active Substance: VITAMIN D NOS
  6. MIRTAZAPINE 7.5 MG TABLET [Suspect]
     Active Substance: MIRTAZAPINE
     Indication: INITIAL INSOMNIA
     Dosage: ?          QUANTITY:30 TABLET(S);?
     Route: 048
  7. VITAMIN B12 [Concomitant]
     Active Substance: CYANOCOBALAMIN
  8. LISINOPRIL. [Concomitant]
     Active Substance: LISINOPRIL
  9. VISION SHIELD [Concomitant]

REACTIONS (2)
  - Paraesthesia oral [None]
  - Tremor [None]

NARRATIVE: CASE EVENT DATE: 20190409
